FAERS Safety Report 5478957-X (Version None)
Quarter: 2007Q4

REPORT INFORMATION
  Report Type: 
  Country: None (occurrence: None)
  Receive Date: 20071006
  Receipt Date: 20070925
  Transmission Date: 20080405
  Serious: Yes (Life-Threatening, Hospitalization)
  Sender: FDA-Public Use
  Company Number: FR-PFIZER INC-2007066426

PATIENT
  Sex: Male
  Weight: 102 kg

DRUGS (2)
  1. CHAMPIX [Suspect]
     Indication: SMOKING CESSATION THERAPY
     Route: 048
     Dates: start: 20070722, end: 20070802
  2. NICOPATCH [Concomitant]
     Indication: SMOKING CESSATION THERAPY
     Dates: start: 20070722, end: 20070802

REACTIONS (2)
  - PHLEBITIS [None]
  - PULMONARY EMBOLISM [None]
